FAERS Safety Report 6421180-2 (Version None)
Quarter: 2009Q4

REPORT INFORMATION
  Report Type: 
  Country: None (occurrence: None)
  Receive Date: 20091030
  Receipt Date: 20091022
  Transmission Date: 20100525
  Serious: Yes (Other)
  Sender: FDA-Public Use
  Company Number: US-JNJFOC-20091007655

PATIENT
  Age: 23 Year
  Sex: Female
  Weight: 63.5 kg

DRUGS (5)
  1. MOTRIN [Suspect]
     Route: 048
  2. MOTRIN [Suspect]
     Indication: DYSMENORRHOEA
     Dosage: 200-400MG, AS NEEDED
     Route: 048
  3. GENERIC IBUPROFEN [Suspect]
     Route: 048
  4. GENERIC IBUPROFEN [Suspect]
     Indication: DYSMENORRHOEA
     Dosage: 200-400MG AS NEEDED FOR ^YEARS^
     Route: 048
  5. CONTRACEPTIVES [Suspect]
     Indication: CONTRACEPTION
     Route: 048

REACTIONS (1)
  - CEREBROVASCULAR ACCIDENT [None]
